FAERS Safety Report 4915773-9 (Version None)
Quarter: 2006Q1

REPORT INFORMATION
  Report Type: 
  Country: None (occurrence: None)
  Receive Date: 20060214
  Receipt Date: 20060130
  Transmission Date: 20060701
  Serious: Yes (Disabling, Other)
  Sender: FDA-Public Use
  Company Number: US200601005510

PATIENT
  Age: 84 Year
  Sex: Female

DRUGS (3)
  1. EVISTA [Suspect]
     Indication: OSTEOPOROSIS
     Dosage: ORAL
     Route: 048
     Dates: start: 20010101
  2. EYE DROPS [Concomitant]
  3. ANALGESICS [Concomitant]

REACTIONS (4)
  - BLINDNESS UNILATERAL [None]
  - FALL [None]
  - JOINT INJURY [None]
  - NAIL HYPERTROPHY [None]
